FAERS Safety Report 7274903-7 (Version None)
Quarter: 2010Q4

REPORT INFORMATION
  Report Type: 
  Country: None (occurrence: None)
  Receive Date: 20101130
  Receipt Date: 20100129
  Transmission Date: 20110411
  Serious: Yes (Other)
  Sender: FDA-Public Use
  Company Number: 2010SP006327

PATIENT
  Age: 26 Year
  Sex: Female

DRUGS (2)
  1. NUVARING [Suspect]
     Indication: MENSTRUAL CYCLE MANAGEMENT
     Dosage: VAG
     Route: 067
     Dates: start: 20030701, end: 20031002
  2. NAPROXEN [Concomitant]

REACTIONS (3)
  - DEEP VEIN THROMBOSIS [None]
  - METRORRHAGIA [None]
  - SYNOVIAL CYST [None]
